FAERS Safety Report 25615743 (Version 1)
Quarter: 2025Q3

REPORT INFORMATION
  Report Type: Spontaneous
  Country: US (occurrence: US)
  Receive Date: 20250729
  Receipt Date: 20250729
  Transmission Date: 20251020
  Serious: No
  Sender: ALEXION PHARMACEUTICALS
  Company Number: US-AstraZeneca-CH-00919408A

PATIENT
  Sex: Male

DRUGS (1)
  1. CALQUENCE [Suspect]
     Active Substance: ACALABRUTINIB
     Route: 065

REACTIONS (6)
  - Rash [Unknown]
  - Fall [Unknown]
  - Injury [Unknown]
  - Asthenia [Unknown]
  - Pain [Unknown]
  - Sciatica [Unknown]

NARRATIVE: CASE EVENT DATE: 20250713
